FAERS Safety Report 24946104 (Version 1)
Quarter: 2025Q1

REPORT INFORMATION
  Report Type: Spontaneous
  Country: GB (occurrence: GB)
  Receive Date: 20250210
  Receipt Date: 20250210
  Transmission Date: 20250409
  Serious: Yes (Other)
  Sender: ALKEM
  Company Number: None

PATIENT
  Age: 60 Year
  Sex: Male

DRUGS (1)
  1. LINEZOLID [Suspect]
     Active Substance: LINEZOLID
     Indication: Gastrointestinal infection
     Route: 065
     Dates: start: 20240422, end: 20240501

REACTIONS (1)
  - Blood lactic acid [Recovering/Resolving]

NARRATIVE: CASE EVENT DATE: 20240424
